FAERS Safety Report 13006890 (Version 1)
Quarter: 2016Q4

REPORT INFORMATION
  Report Type: Spontaneous
  Country: None (occurrence: US)
  Receive Date: 20161207
  Receipt Date: 20161207
  Transmission Date: 20170207
  Serious: No
  Sender: FDA-Public Use
  Company Number: US-ENDO PHARMACEUTICALS INC.-2016-006042

PATIENT
  Age: 57 Year
  Sex: Female
  Weight: 70.37 kg

DRUGS (4)
  1. LINZESS [Concomitant]
     Active Substance: LINACLOTIDE
     Indication: CONSTIPATION
  2. ACIPHEX [Concomitant]
     Active Substance: RABEPRAZOLE SODIUM
     Indication: GASTROOESOPHAGEAL REFLUX DISEASE
  3. TEMAZEPAM CAPSULES 15MG [Suspect]
     Active Substance: TEMAZEPAM
     Indication: SLEEP DISORDER
     Route: 048
     Dates: start: 20160607, end: 201607
  4. TEMAZEPAM CAPSULES 15MG [Suspect]
     Active Substance: TEMAZEPAM
     Route: 048
     Dates: start: 201607

REACTIONS (3)
  - Drug effect decreased [Unknown]
  - Drug effect delayed [Unknown]
  - Drug ineffective [Recovered/Resolved]

NARRATIVE: CASE EVENT DATE: 20160607
